FAERS Safety Report 8824758 (Version 1)
Quarter: 2012Q4

REPORT INFORMATION
  Report Type: 
  Country: CH (occurrence: CH)
  Receive Date: 20121004
  Receipt Date: 20121004
  Transmission Date: 20130627
  Serious: Yes (Hospitalization)
  Sender: FDA-Public Use
  Company Number: CH-PFIZER INC-2012240904

PATIENT
  Sex: Female

DRUGS (1)
  1. DETRUSITOL [Suspect]
     Dosage: UNK

REACTIONS (1)
  - Confusional state [Not Recovered/Not Resolved]
